FAERS Safety Report 11860423 (Version 1)
Quarter: 2015Q4

REPORT INFORMATION
  Report Type: Spontaneous
  Country: FR (occurrence: FR)
  Receive Date: 20151222
  Receipt Date: 20151222
  Transmission Date: 20160305
  Serious: Yes (Other)
  Sender: FDA-Public Use
  Company Number: FR-TEVA-619747ISR

PATIENT
  Age: 7 Year
  Sex: Female
  Weight: 18 kg

DRUGS (5)
  1. VINCRISTINE TEVA [Suspect]
     Active Substance: VINCRISTINE
     Indication: NON-HODGKIN^S LYMPHOMA
     Dosage: 2.28 MILLIGRAM DAILY; SECOND INTENSIVE CHEMOTHERAPY
     Route: 040
     Dates: start: 20151012, end: 20151022
  2. METHOTREXATE (METHOTREXATE SODIUM) [Suspect]
     Active Substance: METHOTREXATE SODIUM
     Indication: NON-HODGKIN^S LYMPHOMA
     Route: 041
     Dates: start: 20151012, end: 20151022
  3. ERWINASE 10000 U [Suspect]
     Active Substance: ASPARAGINASE ERWINIA CHRYSANTHEMI
     Indication: NON-HODGKIN^S LYMPHOMA
     Dosage: 9500 IU (INTERNATIONAL UNIT) DAILY; SECOND INTENSIVE CHEMOTHERAPY
     Route: 030
     Dates: start: 20151022
  4. METHOTREXATE (METHOTREXATE SODIUM) [Suspect]
     Active Substance: METHOTREXATE SODIUM
     Dosage: 12 MILLIGRAM DAILY; SECOND INTENSIVE CHEMOTHERAPY
     Route: 037
     Dates: start: 20151013
  5. KIDROLASE 10000 IU [Suspect]
     Active Substance: ASPARAGINASE
     Indication: NON-HODGKIN^S LYMPHOMA
     Dosage: 7600 IU (INTERNATIONAL UNIT) DAILY; SECOND INTENSIVE CHEMOTHERAPY
     Route: 030
     Dates: start: 20151007

REACTIONS (1)
  - Hepatocellular injury [Recovered/Resolved]

NARRATIVE: CASE EVENT DATE: 20151026
